FAERS Safety Report 5102323-X (Version None)
Quarter: 2006Q3

REPORT INFORMATION
  Report Type: 
  Country: None (occurrence: None)
  Receive Date: 20060912
  Receipt Date: 20060830
  Transmission Date: 20061208
  Serious: Yes (Hospitalization)
  Sender: FDA-Public Use
  Company Number: US-NOVOPROD-256513

PATIENT
  Age: 63 Year
  Sex: Female
  Weight: 134 kg

DRUGS (1)
  1. NOVOLOG MIX 70/30 [Suspect]
     Indication: INSULIN-REQUIRING TYPE II DIABETES MELLITUS
     Dosage: 50 IU, QD
     Route: 058
     Dates: start: 20060101, end: 20060826

REACTIONS (3)
  - BLOOD POTASSIUM DECREASED [None]
  - HYPERSENSITIVITY [None]
  - HYPOAESTHESIA [None]
